FAERS Safety Report 5084540-0 (Version None)
Quarter: 2006Q3

REPORT INFORMATION
  Report Type: 
  Country: None (occurrence: None)
  Receive Date: 20060821
  Receipt Date: 20060511
  Transmission Date: 20061208
  Serious: Yes (Disabling)
  Sender: FDA-Public Use
  Company Number: US-MERCK-0605USA02038

PATIENT
  Age: 77 Year
  Sex: Male
  Weight: 123 kg

DRUGS (3)
  1. VYTORIN [Suspect]
     Indication: BLOOD CHOLESTEROL
     Route: 048
     Dates: end: 20060101
  2. [THERAPY UNSPECIFIED] [Concomitant]
     Route: 065
  3. ZETIA [Concomitant]
     Route: 048

REACTIONS (2)
  - ANAEMIA [None]
  - PAIN IN EXTREMITY [None]
